FAERS Safety Report 21096069 (Version 1)
Quarter: 2022Q3

REPORT INFORMATION
  Report Type: Spontaneous
  Country: US (occurrence: US)
  Receive Date: 20220718
  Receipt Date: 20220718
  Transmission Date: 20221026
  Serious: Yes (Hospitalization, Disabling)
  Sender: FDA-Public Use
  Company Number: US-JUBILANT CADISTA PHARMACEUTICALS-2022JUB00183

PATIENT
  Sex: Male

DRUGS (6)
  1. METHYLPREDNISOLONE [Suspect]
     Active Substance: METHYLPREDNISOLONE
     Indication: Back pain
     Dosage: 40 MG, ONCE
     Route: 008
  2. METHYLPREDNISOLONE [Suspect]
     Active Substance: METHYLPREDNISOLONE
     Indication: Radiculopathy
  3. METHYLPREDNISOLONE [Suspect]
     Active Substance: METHYLPREDNISOLONE
     Indication: Hypoaesthesia
  4. BUPIVACAINE [Concomitant]
     Active Substance: BUPIVACAINE
     Indication: Back pain
     Dosage: 1 ML, ONCE
     Route: 008
  5. BUPIVACAINE [Concomitant]
     Active Substance: BUPIVACAINE
     Indication: Radiculopathy
  6. BUPIVACAINE [Concomitant]
     Active Substance: BUPIVACAINE
     Indication: Hypoaesthesia

REACTIONS (1)
  - Spinal cord infarction [Not Recovered/Not Resolved]
